FAERS Safety Report 8670626 (Version 4)
Quarter: 2012Q4

REPORT INFORMATION
  Report Type: 
  Country: US (occurrence: US)
  Receive Date: 20120718
  Receipt Date: 20121119
  Transmission Date: 20130627
  Serious: Yes (Death, Hospitalization, Other)
  Sender: FDA-Public Use
  Company Number: US-ASTELLAS-2012US006177

PATIENT
  Age: 86 Year
  Sex: Female

DRUGS (17)
  1. VESICARE [Suspect]
     Indication: HYPERTONIC BLADDER
     Dosage: 5 mg, UID/QD
     Route: 048
     Dates: start: 20120627, end: 20120707
  2. OXYBUTYNIN [Suspect]
     Indication: PRODUCT USED FOR UNKNOWN INDICATION
     Dosage: 5 mg, QHS
     Route: 048
     Dates: start: 20120706
  3. OXYBUTYNIN [Suspect]
     Dosage: 5 mg, QHS
     Route: 062
     Dates: start: 20120706
  4. COUMADIN                           /00014802/ [Suspect]
     Indication: MITRAL VALVE REPLACEMENT
     Dosage: 2.5 mg, Sun/Mon/Wed/Fri
     Route: 048
     Dates: end: 20120707
  5. COUMADIN                           /00014802/ [Suspect]
     Dosage: 5 mg, Tues/Thurs/Sat
     Route: 048
  6. RANITIDINE [Concomitant]
     Indication: GASTROOESOPHAGEAL REFLUX DISEASE
     Dosage: 150 mg, bid
     Route: 048
  7. CALCIUM WITH VITAMIN D             /01233101/ [Concomitant]
     Indication: PRODUCT USED FOR UNKNOWN INDICATION
     Dosage: 1 DF, UID/QD
     Route: 048
  8. HYDROCHLOROTHIAZIDE [Concomitant]
     Indication: PRODUCT USED FOR UNKNOWN INDICATION
     Dosage: 12.5 mg, UID/QD
     Route: 048
  9. SENNA                              /00142201/ [Concomitant]
     Indication: PRODUCT USED FOR UNKNOWN INDICATION
  10. LISINOPRIL [Concomitant]
     Indication: PRODUCT USED FOR UNKNOWN INDICATION
     Dosage: 2.5 mg, UID/QD
     Route: 048
  11. LUTEIN                             /01638501/ [Concomitant]
     Indication: PRODUCT USED FOR UNKNOWN INDICATION
     Dosage: 20 mg, UID/QD
     Route: 048
  12. PREVACID [Concomitant]
     Indication: PRODUCT USED FOR UNKNOWN INDICATION
     Dosage: 15 mg, UID/QD
     Route: 048
  13. PREVACID [Concomitant]
     Dosage: 30 mg, UID/QD
     Route: 048
  14. PROPANOLOL                         /00030001/ [Concomitant]
     Indication: PRODUCT USED FOR UNKNOWN INDICATION
     Dosage: 80 mg, bid
     Route: 048
  15. STOOL SOFTENER [Concomitant]
     Indication: PRODUCT USED FOR UNKNOWN INDICATION
     Dosage: 100 mg, prn
     Route: 048
  16. MECLIZINE                          /00072801/ [Concomitant]
     Indication: DIZZINESS
     Dosage: 1 DF, q 4 hrs prn
     Route: 048
  17. PRESERVISION AREDS [Concomitant]
     Indication: PRODUCT USED FOR UNKNOWN INDICATION
     Dosage: 1 DF, UID/QD
     Route: 048

REACTIONS (14)
  - Confusional state [Unknown]
  - Abdominal pain [Recovered/Resolved]
  - Urinary retention [Unknown]
  - Cardio-respiratory arrest [Fatal]
  - Clostridium difficile colitis [Unknown]
  - Renal failure [Unknown]
  - Dehydration [Unknown]
  - International normalised ratio increased [Not Recovered/Not Resolved]
  - Headache [Unknown]
  - Disorientation [Unknown]
  - Nausea [Unknown]
  - Vomiting [Unknown]
  - Mood altered [Unknown]
  - Balance disorder [Unknown]
